FAERS Safety Report 14142111 (Version 1)
Quarter: 2017Q4

REPORT INFORMATION
  Report Type: Spontaneous
  Country: GB (occurrence: GB)
  Receive Date: 20171030
  Receipt Date: 20171030
  Transmission Date: 20180321
  Serious: Yes (Other)
  Sender: FDA-Public Use
  Company Number: GB-TEVA-819209ACC

PATIENT
  Age: 8 Year
  Sex: Female

DRUGS (2)
  1. CISPLATIN. [Suspect]
     Active Substance: CISPLATIN
     Indication: GLIOMA
     Route: 065
     Dates: end: 201504
  2. CYCLOPHOSPHAMIDE SANDOZ LTD [Suspect]
     Active Substance: CYCLOPHOSPHAMIDE
     Indication: GLIOMA
     Route: 065
     Dates: end: 201504

REACTIONS (2)
  - Glioma [Unknown]
  - Malignant neoplasm progression [Unknown]

NARRATIVE: CASE EVENT DATE: 201209
